FAERS Safety Report 7388239-7 (Version None)
Quarter: 2011Q2

REPORT INFORMATION
  Report Type: 
  Country: None (occurrence: None)
  Receive Date: 20110401
  Receipt Date: 20110304
  Transmission Date: 20111010
  Serious: No
  Sender: FDA-Public Use
  Company Number: US-B.I. PHARMACEUTICALS,INC./RIDGEFIELD-2011-BP-06954BP

PATIENT
  Sex: Female

DRUGS (3)
  1. CATAPRES-TTS-1 [Suspect]
     Indication: HYPERTENSION
     Dosage: 0.2 MG
     Route: 061
     Dates: start: 20080101, end: 20110226
  2. CATAPRES [Suspect]
     Indication: HYPERTENSION
     Dosage: 0.2 MG
     Route: 048
     Dates: start: 20110227, end: 20110301
  3. CATAPRES-TTS-1 [Suspect]
     Dosage: 0.2 MG
     Route: 061
     Dates: start: 20110301

REACTIONS (4)
  - ABDOMINAL DISCOMFORT [None]
  - DRY MOUTH [None]
  - APPLICATION SITE ERYTHEMA [None]
  - CYSTITIS [None]
